FAERS Safety Report 20482121 (Version 2)
Quarter: 2022Q2

REPORT INFORMATION
  Report Type: Spontaneous
  Country: US (occurrence: None)
  Receive Date: 20220216
  Receipt Date: 20220410
  Transmission Date: 20220721
  Serious: No
  Sender: FDA-Public Use
  Company Number: 2022A063003

PATIENT
  Sex: Female
  Weight: 50.8 kg

DRUGS (3)
  1. SYMBICORT [Suspect]
     Active Substance: BUDESONIDE\FORMOTEROL FUMARATE DIHYDRATE
     Dosage: 160-4.5 MCG 2 PUFFS TWICE A DAY
     Route: 055
  2. NYSTATIN [Concomitant]
     Active Substance: NYSTATIN
  3. SPIRIVA [Concomitant]
     Active Substance: TIOTROPIUM BROMIDE MONOHYDRATE

REACTIONS (4)
  - Oropharyngeal pain [Unknown]
  - Oral candidiasis [Unknown]
  - Device malfunction [Unknown]
  - Product packaging quantity issue [Unknown]
